FAERS Safety Report 5281964-3 (Version None)
Quarter: 2007Q1

REPORT INFORMATION
  Report Type: 
  Country: None (occurrence: None)
  Receive Date: 20070326
  Receipt Date: 20070313
  Transmission Date: 20070707
  Serious: Yes (Other)
  Sender: FDA-Public Use
  Company Number: GXKR2007JP02503

PATIENT
  Age: 66 Year
  Sex: Male

DRUGS (2)
  1. FUROSEMIDE [Suspect]
     Indication: OEDEMA
     Dosage: 40 MG
     Dates: start: 20030201
  2. TORASEMIDE (NGX) (TORASEMIDE) UNKNOWN [Suspect]
     Indication: OEDEMA
     Dosage: 8 MG

REACTIONS (8)
  - GAIT DISTURBANCE [None]
  - HYPOTHYROIDISM [None]
  - MUSCULAR WEAKNESS [None]
  - OEDEMA [None]
  - PITTING OEDEMA [None]
  - POLYNEUROPATHY [None]
  - SENSORY DISTURBANCE [None]
  - VITAMIN B1 DEFICIENCY [None]
